FAERS Safety Report 7150095-X (Version None)
Quarter: 2010Q4

REPORT INFORMATION
  Report Type: 
  Country: None (occurrence: None)
  Receive Date: 20101210
  Receipt Date: 20101129
  Transmission Date: 20110411
  Serious: No
  Sender: FDA-Public Use
  Company Number: US-ELI_LILLY_AND_COMPANY-US201003002989

PATIENT
  Sex: Female

DRUGS (6)
  1. CYMBALTA [Suspect]
     Indication: MAJOR DEPRESSION
     Dosage: 60 MG, UNK
     Route: 048
     Dates: start: 20080201
  2. CYMBALTA [Suspect]
     Dosage: 30 MG, UNK
     Dates: start: 20080701
  3. CYMBALTA [Suspect]
     Dosage: 60 MG, UNK
     Route: 048
     Dates: end: 20090323
  4. FLUOXETINE [Concomitant]
     Dosage: 10 MG, UNK
  5. ZOLPIDEM [Concomitant]
     Dosage: 10 MG, UNK
  6. LAMICTAL [Concomitant]
     Dosage: 200 MG, UNK

REACTIONS (3)
  - OCULAR ICTERUS [None]
  - SENSITIVITY OF TEETH [None]
  - TOOTH DISCOLOURATION [None]
